FAERS Safety Report 20410762 (Version 4)
Quarter: 2022Q1

REPORT INFORMATION
  Report Type: Spontaneous
  Country: US (occurrence: US)
  Receive Date: 20220201
  Receipt Date: 20220301
  Transmission Date: 20220423
  Serious: Yes (Other)
  Sender: FDA-Public Use
  Company Number: US-BAYER-2022A014412

PATIENT
  Age: 52 Year
  Sex: Female

DRUGS (1)
  1. MIRENA [Suspect]
     Active Substance: LEVONORGESTREL
     Dosage: 20?G/DAY
     Route: 015
     Dates: start: 2014, end: 20211222

REACTIONS (4)
  - Device breakage [None]
  - Device expulsion [None]
  - Complication of device removal [None]
  - Device issue [None]

NARRATIVE: CASE EVENT DATE: 20211119
